FAERS Safety Report 10438335 (Version 1)
Quarter: 2014Q3

REPORT INFORMATION
  Report Type: Spontaneous
  Country: CA (occurrence: CA)
  Receive Date: 20140908
  Receipt Date: 20140908
  Transmission Date: 20150326
  Serious: Yes (Other)
  Sender: FDA-Public Use
  Company Number: CA-GLAXOSMITHKLINE-A1087786A

PATIENT
  Age: 69 Year
  Sex: Male

DRUGS (5)
  1. ROSUVASTATIN [Concomitant]
     Active Substance: ROSUVASTATIN
  2. ALLOPURINOL. [Concomitant]
     Active Substance: ALLOPURINOL
  3. AVODART [Suspect]
     Active Substance: DUTASTERIDE
     Indication: PRODUCT USED FOR UNKNOWN INDICATION
     Dosage: .5MG PER DAY
     Route: 048
  4. METROGEL [Concomitant]
     Active Substance: METRONIDAZOLE
  5. TRAZODONE [Concomitant]
     Active Substance: TRAZODONE HYDROCHLORIDE

REACTIONS (2)
  - Breast mass [Unknown]
  - Breast pain [Unknown]
